FAERS Safety Report 8591145-3 (Version None)
Quarter: 2012Q3

REPORT INFORMATION
  Report Type: 
  Country: None (occurrence: None)
  Receive Date: 20120813
  Receipt Date: 20120808
  Transmission Date: 20120928
  Serious: Yes (Other)
  Sender: FDA-Public Use
  Company Number: US-ROCHE-1099145

PATIENT
  Sex: Female

DRUGS (15)
  1. METOPROLOL TARTRATE [Concomitant]
     Indication: HYPERTENSION
     Dates: start: 20110222
  2. PERCOCET [Concomitant]
     Dates: start: 20120222
  3. ALPRAZOLAM [Concomitant]
     Indication: ANXIETY
  4. LASIX [Concomitant]
     Indication: OEDEMA PERIPHERAL
     Dates: start: 20120228
  5. KLOR-CON [Concomitant]
     Indication: HYPOCALCAEMIA
     Dates: start: 20120228
  6. RAMIPRIL [Concomitant]
     Indication: HYPERTENSION
     Dates: start: 20110222
  7. CITALOPRAM [Concomitant]
     Indication: DEPRESSION
     Dates: start: 20110617
  8. ALLEGRA-D 12 HOUR [Concomitant]
     Indication: SEASONAL ALLERGY
  9. FAMOTIDINE [Concomitant]
     Indication: GASTROOESOPHAGEAL REFLUX DISEASE
     Dates: start: 20110222
  10. CRESTOR [Concomitant]
     Indication: HYPERCHOLESTEROLAEMIA
  11. SIMVASTATIN [Concomitant]
     Indication: BLOOD CHOLESTEROL INCREASED
     Dates: start: 20110222
  12. RANIBIZUMAB [Suspect]
     Indication: MACULAR DEGENERATION
     Dosage: LAST DOSE PRIOR TO SAE: 18/MAY/2012
     Route: 050
     Dates: start: 20100728
  13. LEVOTHYROXINE SODIUM [Concomitant]
     Indication: HYPOTHYROIDISM
  14. AGGRENOX [Concomitant]
     Indication: CEREBROVASCULAR ACCIDENT
  15. OXYCODONE [Concomitant]
     Indication: ARTHRITIS

REACTIONS (1)
  - VISUAL ACUITY REDUCED [None]
